FAERS Safety Report 10621749 (Version 2)
Quarter: 2014Q4

REPORT INFORMATION
  Report Type: Spontaneous
  Country: US (occurrence: US)
  Receive Date: 20141203
  Receipt Date: 20141215
  Transmission Date: 20150529
  Serious: No
  Sender: FDA-Public Use
  Company Number: US-PFIZER INC-2014329286

PATIENT
  Sex: Male
  Weight: 77 kg

DRUGS (1)
  1. VIAGRA [Suspect]
     Active Substance: SILDENAFIL CITRATE
     Dosage: UNK
     Dates: start: 20141124, end: 20141125

REACTIONS (6)
  - Genital disorder male [Unknown]
  - Penile vascular disorder [Unknown]
  - Penis disorder [Unknown]
  - Painful erection [Unknown]
  - Skin odour abnormal [Unknown]
  - Skin discolouration [Unknown]

NARRATIVE: CASE EVENT DATE: 201411
